FAERS Safety Report 12846192 (Version 2)
Quarter: 2017Q2

REPORT INFORMATION
  Report Type: Report from Study
  Country: US (occurrence: US)
  Receive Date: 20161014
  Receipt Date: 20170530
  Transmission Date: 20170830
  Serious: No
  Sender: FDA-Public Use
  Company Number: PHEH2016US026048

PATIENT
  Sex: Male

DRUGS (1)
  1. ILARIS [Suspect]
     Active Substance: CANAKINUMAB
     Indication: STILL^S DISEASE
     Dosage: 280 MG, EVERY 3 WEEKS
     Route: 058

REACTIONS (2)
  - Viral upper respiratory tract infection [Unknown]
  - Inappropriate schedule of drug administration [Unknown]
